FAERS Safety Report 5632611-X (Version None)
Quarter: 2008Q1

REPORT INFORMATION
  Report Type: 
  Country: None (occurrence: None)
  Receive Date: 20080220
  Receipt Date: 20080208
  Transmission Date: 20080703
  Serious: Yes (Hospitalization, Other)
  Sender: FDA-Public Use
  Company Number: AT-PFIZER INC-2008012688

PATIENT
  Sex: Male
  Weight: 100 kg

DRUGS (3)
  1. ANIDULAFUNGIN [Suspect]
     Indication: CANDIDIASIS
     Dosage: DAILY DOSE:100MG
     Route: 042
     Dates: start: 20080128, end: 20080207
  2. SORTIS [Suspect]
     Indication: HYPERLIPIDAEMIA
     Dosage: DAILY DOSE:80MG
     Route: 048
  3. OPTINEM [Concomitant]
     Route: 042
     Dates: start: 20080129, end: 20080209

REACTIONS (3)
  - BLOOD CREATINE PHOSPHOKINASE INCREASED [None]
  - MYOGLOBIN BLOOD INCREASED [None]
  - RHABDOMYOLYSIS [None]
